FAERS Safety Report 18888561 (Version 1)
Quarter: 2021Q1

REPORT INFORMATION
  Report Type: Report from Study
  Country: US (occurrence: US)
  Receive Date: 20210212
  Receipt Date: 20210212
  Transmission Date: 20210420
  Serious: Yes (Hospitalization, Other)
  Sender: FDA-Public Use
  Company Number: US-JNJFOC-20210108001

PATIENT
  Age: 49 Year
  Sex: Male
  Weight: 100.79 kg

DRUGS (3)
  1. TADALAFIL. [Suspect]
     Active Substance: TADALAFIL
     Indication: PRODUCT USED FOR UNKNOWN INDICATION
  2. OPSUMIT [Concomitant]
     Active Substance: MACITENTAN
  3. EPOPROSTENOL SODIUM. [Suspect]
     Active Substance: EPOPROSTENOL SODIUM
     Indication: PULMONARY ARTERIAL HYPERTENSION
     Route: 042

REACTIONS (11)
  - Acute kidney injury [Unknown]
  - Swelling face [Unknown]
  - Pain in jaw [Unknown]
  - Blood pressure decreased [Recovering/Resolving]
  - Nausea [Unknown]
  - Dermatitis contact [Unknown]
  - Accidental underdose [Unknown]
  - Pancytopenia [Unknown]
  - Malaise [Unknown]
  - Dehydration [Unknown]
  - Hypophagia [Unknown]

NARRATIVE: CASE EVENT DATE: 20201221
